FAERS Safety Report 15170580 (Version 1)
Quarter: 2018Q3

REPORT INFORMATION
  Report Type: Spontaneous
  Country: US (occurrence: US)
  Receive Date: 20180622
  Receipt Date: 20180622
  Transmission Date: 20181010
  Serious: Yes (Hospitalization)
  Sender: FDA-Public Use
  Company Number: None

PATIENT
  Age: 1 Day
  Sex: Male
  Weight: 94 kg

DRUGS (1)
  1. VANCOMYCIN 1500MG FRESENIUS KABI [Suspect]
     Active Substance: VANCOMYCIN
     Indication: BACTERAEMIA
     Dosage: ?          OTHER FREQUENCY:Q24HR;?
     Route: 042
     Dates: start: 20171219, end: 20171219

REACTIONS (2)
  - Pruritus [None]
  - Headache [None]

NARRATIVE: CASE EVENT DATE: 20171219
